FAERS Safety Report 4758559-0 (Version None)
Quarter: 2005Q3

REPORT INFORMATION
  Report Type: 
  Country: None (occurrence: None)
  Receive Date: 20050829
  Receipt Date: 20050822
  Transmission Date: 20060218
  Serious: Yes (Life-Threatening, Hospitalization, Other)
  Sender: FDA-Public Use
  Company Number: H-CH2005-10453

PATIENT
  Age: 23 Year
  Sex: Female

DRUGS (20)
  1. BOSENTAN (BOSENTAN I.PHS TABLET 125 MG)TABLET [Suspect]
     Indication: PULMONARY HYPERTENSION
     Dosage: 62.5 + 125 MG, BID, ORAL SEE IMAGE
     Route: 048
     Dates: start: 20040705, end: 20040801
  2. BOSENTAN (BOSENTAN I.PHS TABLET 125 MG)TABLET [Suspect]
     Indication: PULMONARY HYPERTENSION
     Dosage: 62.5 + 125 MG, BID, ORAL SEE IMAGE
     Route: 048
     Dates: start: 20040802, end: 20050228
  3. BOSENTAN (BOSENTAN I.PHS TABLET 125 MG)TABLET [Suspect]
     Indication: PULMONARY HYPERTENSION
     Dosage: 62.5 + 125 MG, BID, ORAL SEE IMAGE
     Route: 048
     Dates: start: 20050311, end: 20050811
  4. MARCUMAR [Concomitant]
  5. IMURAN [Concomitant]
  6. ALENDRONATE SODIUM [Concomitant]
  7. CALCICHEW (CALCIUM CARBONATE) INFUSION [Concomitant]
  8. SINTROM MITIS (ACENOCOUMAROL) [Concomitant]
  9. HYDROCORT (HYDROCORTISONE ACETATE) CREAM [Concomitant]
  10. PREDNISONE [Concomitant]
  11. DESLORATADINE (DESLORATADINE) [Concomitant]
  12. OCULENTUM SIMPLEX (CETOSTEARYL ALCOHOL, WOOL FAT, PARAFFIN, PETROLATUM [Concomitant]
  13. MICROGYNON (ETHINYLESTRADIOL, LEVONORGESTREL) [Concomitant]
  14. ISOSORBIDE (ISOSORBIDE) [Concomitant]
  15. CALMURID (BETAINE, LACTIC ACID, UREA) [Concomitant]
  16. BETAMETHASONE [Concomitant]
  17. FUCIDINE CAP [Concomitant]
  18. KETOCONAZOLE [Concomitant]
  19. HYDROCET (HYDROCODONE BITARTRATE, PARACETAMOL) [Concomitant]
  20. VASELINE (PARAFFIN SOFT) [Concomitant]

REACTIONS (3)
  - GASTROINTESTINAL HAEMORRHAGE [None]
  - INTERNATIONAL NORMALISED RATIO INCREASED [None]
  - LIVER FUNCTION TEST ABNORMAL [None]
